FAERS Safety Report 7550058-6 (Version None)
Quarter: 2011Q2

REPORT INFORMATION
  Report Type: 
  Country: None (occurrence: None)
  Receive Date: 20110615
  Receipt Date: 20110610
  Transmission Date: 20111010
  Serious: Yes (Other)
  Sender: FDA-Public Use
  Company Number: CHPA2011US07748

PATIENT
  Age: 64 Year
  Sex: Male
  Weight: 97.506 kg

DRUGS (1)
  1. TRANSDERM SCOP [Suspect]
     Indication: PROCEDURAL NAUSEA
     Dosage: 1 PATCH, EVERY 3 DAY
     Route: 062
     Dates: start: 20110501

REACTIONS (5)
  - HEART RATE DECREASED [None]
  - WITHDRAWAL SYNDROME [None]
  - HEART RATE IRREGULAR [None]
  - BALANCE DISORDER [None]
  - MALAISE [None]
